FAERS Safety Report 16061436 (Version 1)
Quarter: 2019Q2

REPORT INFORMATION
  Report Type: Spontaneous
  Country: US (occurrence: US)
  Receive Date: 20190312
  Receipt Date: 20190312
  Transmission Date: 20190711
  Serious: Yes (Life-Threatening, Hospitalization, Disabling)
  Sender: FDA-Public Use
  Company Number: None

PATIENT
  Age: 87 Year
  Sex: Male
  Weight: 72 kg

DRUGS (7)
  1. CENTRUM SILVER [Concomitant]
     Active Substance: MINERALS\VITAMINS
  2. ASPIRIN 81 MG PO ONCE DAILY [Concomitant]
  3. LINACLOTIDE 145 MCG CAPSULE PO ONCE DAILY BEFORE BREAKFAST [Concomitant]
  4. OMEPRAZOLE 20 MG CAPSULE PO ONCE DAILY BEFORE BREAKFAST [Concomitant]
  5. APIXABAN [Suspect]
     Active Substance: APIXABAN
     Indication: ATRIAL FIBRILLATION
     Route: 048
  6. METOPROLOL SUCCINATE XL 50 MG PO ONCE DAILY [Concomitant]
  7. SIMVASTATIN 40 MG PO ONCE DAILY AT NIGHT [Concomitant]

REACTIONS (2)
  - Intraventricular haemorrhage [None]
  - Haemorrhage intracranial [None]

NARRATIVE: CASE EVENT DATE: 20190311
